FAERS Safety Report 7471948-9 (Version None)
Quarter: 2011Q2

REPORT INFORMATION
  Report Type: 
  Country: None (occurrence: None)
  Receive Date: 20110511
  Receipt Date: 20100729
  Transmission Date: 20111010
  Serious: No
  Sender: FDA-Public Use
  Company Number: A0874657A

PATIENT

DRUGS (2)
  1. XELODA [Concomitant]
     Route: 065
     Dates: start: 20100706
  2. TYKERB [Suspect]
     Dosage: 1000MG PER DAY
     Route: 065
     Dates: start: 20100715

REACTIONS (1)
  - DIARRHOEA [None]
